FAERS Safety Report 23131511 (Version 4)
Quarter: 2024Q1

REPORT INFORMATION
  Report Type: Spontaneous
  Country: US (occurrence: US)
  Receive Date: 20231031
  Receipt Date: 20240112
  Transmission Date: 20240410
  Serious: Yes (Death, Life-Threatening, Other)
  Sender: FDA-Public Use
  Company Number: US-GILEAD-2023-0649295

PATIENT
  Age: 29 Year
  Sex: Male
  Weight: 87.2 kg

DRUGS (42)
  1. TECARTUS [Suspect]
     Active Substance: BREXUCABTAGENE AUTOLEUCEL
     Indication: Acute lymphocytic leukaemia
     Dosage: UNK
     Route: 065
     Dates: start: 20230912, end: 20230912
  2. TECARTUS [Suspect]
     Active Substance: BREXUCABTAGENE AUTOLEUCEL
     Dosage: UNK
     Route: 042
     Dates: start: 20230918, end: 20230918
  3. FLUDARABINE [Concomitant]
     Active Substance: FLUDARABINE PHOSPHATE
     Dosage: UNK
     Dates: start: 20230914, end: 20230916
  4. CYCLOPHOSPHAMIDE [Concomitant]
     Active Substance: CYCLOPHOSPHAMIDE
     Dosage: UNK
     Dates: start: 20230916
  5. TYLENOL [Concomitant]
     Active Substance: ACETAMINOPHEN
  6. MAALOX PLUS [ALGELDRATE;DIMETICONE;MAGNESIUM HYDROXIDE] [Concomitant]
  7. BENADRYL [Concomitant]
     Active Substance: DIPHENHYDRAMINE HYDROCHLORIDE
  8. HEPARIN [Concomitant]
     Active Substance: HEPARIN SODIUM
  9. KLOR-CON M20 [Concomitant]
     Active Substance: POTASSIUM CHLORIDE
  10. IMODIUM A-D [Concomitant]
     Active Substance: LOPERAMIDE HYDROCHLORIDE
  11. MAGNESIUM SULFATE [Concomitant]
     Active Substance: MAGNESIUM SULFATE\MAGNESIUM SULFATE HEPTAHYDRATE
  12. SENOKOT-S [Concomitant]
     Active Substance: DOCUSATE SODIUM\SENNOSIDES
  13. ZOSYN [Concomitant]
     Active Substance: PIPERACILLIN SODIUM\TAZOBACTAM SODIUM
  14. NORCO [Concomitant]
     Active Substance: ACETAMINOPHEN\HYDROCODONE BITARTRATE
  15. MORPHINE [Concomitant]
     Active Substance: MORPHINE
  16. ZOVIRAX [Concomitant]
     Active Substance: ACYCLOVIR
  17. ATIVAN [Concomitant]
     Active Substance: LORAZEPAM
  18. ZOFRAN [Concomitant]
     Active Substance: ONDANSETRON HYDROCHLORIDE
  19. ULTRAM [Concomitant]
     Active Substance: TRAMADOL HYDROCHLORIDE
  20. ACTIGALL [Concomitant]
     Active Substance: URSODIOL
  21. SEROQUEL [Concomitant]
     Active Substance: QUETIAPINE FUMARATE
  22. ZYLOPRIM [Concomitant]
     Active Substance: ALLOPURINOL
  23. TOPROL XL [Concomitant]
     Active Substance: METOPROLOL SUCCINATE
  24. BACTRIM [Concomitant]
     Active Substance: SULFAMETHOXAZOLE\TRIMETHOPRIM
  25. TRIAMCINOLONE [Concomitant]
     Active Substance: TRIAMCINOLONE
  26. LOVENOX [Concomitant]
     Active Substance: ENOXAPARIN SODIUM
  27. LIORESAL [Concomitant]
     Active Substance: BACLOFEN
  28. PROTONIX [Concomitant]
     Active Substance: PANTOPRAZOLE SODIUM
  29. GABAPENTIN [Concomitant]
     Active Substance: GABAPENTIN
  30. LEVAQUIN [Concomitant]
     Active Substance: LEVOFLOXACIN
  31. MAXIPIME [Concomitant]
     Active Substance: CEFEPIME HYDROCHLORIDE
  32. VANCOMYCIN [Concomitant]
     Active Substance: VANCOMYCIN
  33. LYRICA [Concomitant]
     Active Substance: PREGABALIN
  34. VASOPRESSIN [Concomitant]
     Active Substance: VASOPRESSIN
  35. LASIX [Concomitant]
     Active Substance: FUROSEMIDE
  36. LEVOPHED [Concomitant]
     Active Substance: NOREPINEPHRINE BITARTRATE
  37. LABETALOL [Concomitant]
     Active Substance: LABETALOL\LABETALOL HYDROCHLORIDE
  38. AMIDATE [ETOMIDATE] [Concomitant]
  39. ZEMURON [Concomitant]
     Active Substance: ROCURONIUM BROMIDE
  40. CYTARABINE [Concomitant]
     Active Substance: CYTARABINE
     Dosage: UNK
     Dates: start: 20231003
  41. NORVASC [Concomitant]
     Active Substance: AMLODIPINE BESYLATE
  42. PRIVIGEN [Concomitant]
     Active Substance: HUMAN IMMUNOGLOBULIN G

REACTIONS (7)
  - Sepsis [Fatal]
  - Pneumonia klebsiella [Fatal]
  - Infection [Fatal]
  - Haemophagocytic lymphohistiocytosis [Not Recovered/Not Resolved]
  - Cytokine release syndrome [Recovering/Resolving]
  - Immune effector cell-associated neurotoxicity syndrome [Not Recovered/Not Resolved]
  - Acute kidney injury [Not Recovered/Not Resolved]

NARRATIVE: CASE EVENT DATE: 20230921
